FAERS Safety Report 11685356 (Version 2)
Quarter: 2015Q4

REPORT INFORMATION
  Report Type: Spontaneous
  Country: FR (occurrence: FR)
  Receive Date: 20151030
  Receipt Date: 20151105
  Transmission Date: 20160304
  Serious: Yes (Other)
  Sender: FDA-Public Use
  Company Number: FR-ROCHE-1652770

PATIENT
  Age: 68 Year
  Sex: Male

DRUGS (15)
  1. UROMITEXAN [Suspect]
     Active Substance: MESNA
     Indication: PRODUCT USED FOR UNKNOWN INDICATION
     Route: 041
     Dates: start: 20150916, end: 20150921
  2. QUESTRAN [Concomitant]
     Active Substance: CHOLESTYRAMINE
     Route: 065
     Dates: end: 20150917
  3. XANAX [Concomitant]
     Active Substance: ALPRAZOLAM
     Route: 065
     Dates: end: 20150917
  4. IFOSFAMIDE EG [Suspect]
     Active Substance: IFOSFAMIDE
     Indication: DIFFUSE LARGE B-CELL LYMPHOMA
     Dosage: OVER 24 HOURS FROM DAY 3
     Route: 041
     Dates: start: 20150916, end: 20150917
  5. ETOPOSIDE. [Suspect]
     Active Substance: ETOPOSIDE
     Indication: DIFFUSE LARGE B-CELL LYMPHOMA
     Dosage: ETOPOSIDE TEVA?ON DAY 2 AND DAY 3
     Route: 041
     Dates: start: 20150915, end: 20150916
  6. SKENAN [Concomitant]
     Active Substance: MORPHINE SULFATE
  7. FASTURTEC [Concomitant]
     Active Substance: RASBURICASE
     Dosage: ANTIEMETIC TREATMENT
     Route: 065
  8. FORLAX [Concomitant]
     Active Substance: POLYETHYLENE GLYCOL 4000
  9. IMIPENEM AND CILASTATIN [Concomitant]
     Active Substance: CILASTATIN SODIUM\IMIPENEM
  10. MABTHERA [Suspect]
     Active Substance: RITUXIMAB
     Indication: DIFFUSE LARGE B-CELL LYMPHOMA
     Dosage: ON DAY 1
     Route: 041
     Dates: start: 20150914
  11. DEBRIDAT [Concomitant]
     Active Substance: TRIMEBUTINE MALEATE
  12. ACUPAN [Concomitant]
     Active Substance: NEFOPAM HYDROCHLORIDE
     Route: 065
     Dates: end: 20150917
  13. ACTISKENAN [Concomitant]
     Active Substance: MORPHINE SULFATE
  14. CIPROFLOXACINE [Concomitant]
     Active Substance: CIPROFLOXACIN
  15. CARBOPLATINE [Suspect]
     Active Substance: CARBOPLATIN
     Indication: DIFFUSE LARGE B-CELL LYMPHOMA
     Dosage: CARBOPLATINE KABI 10 MG/ML?ON DAY 2
     Route: 041
     Dates: start: 20150915

REACTIONS (1)
  - Encephalopathy [Recovered/Resolved]

NARRATIVE: CASE EVENT DATE: 20150917
